FAERS Safety Report 21132097 (Version 2)
Quarter: 2022Q3

REPORT INFORMATION
  Report Type: Spontaneous
  Country: KR (occurrence: KR)
  Receive Date: 20220726
  Receipt Date: 20220920
  Transmission Date: 20221027
  Serious: No
  Sender: FDA-Public Use
  Company Number: KR-PFIZER INC-PV202200020917

PATIENT
  Age: 8 Year
  Sex: Female

DRUGS (1)
  1. GENOTROPIN [Suspect]
     Active Substance: SOMATROPIN
     Indication: Short stature
     Dosage: 2.6 IU, SEVEN DAYS A WEEK
     Dates: start: 202104

REACTIONS (3)
  - Product leakage [Unknown]
  - Product packaging issue [Unknown]
  - Poor quality device used [Unknown]
